FAERS Safety Report 9200217 (Version 2)
Quarter: 2013Q2

REPORT INFORMATION
  Report Type: Spontaneous
  Country: FR (occurrence: FR)
  Receive Date: 20130329
  Receipt Date: 20130603
  Transmission Date: 20140414
  Serious: Yes (Hospitalization, Other)
  Sender: FDA-Public Use
  Company Number: FR-009507513-1302FRA011367

PATIENT
  Age: 68 Year
  Sex: Female
  Weight: 88 kg

DRUGS (11)
  1. VICTRELIS [Suspect]
     Indication: HEPATITIS C
     Dosage: 2400 MG, QD
     Route: 048
     Dates: start: 20120605, end: 20121018
  2. COPEGUS [Suspect]
     Indication: HEPATITIS C
     Dosage: 1000 MG, UNKNOWN
     Dates: start: 20120507
  3. COPEGUS [Suspect]
     Dosage: 800 MG, UNKNOWN
     Route: 048
  4. COPEGUS [Suspect]
     Dosage: 600 MG, UNKNOWN
     Route: 048
  5. COPEGUS [Suspect]
     Dosage: 400 MG, UNKNOWN
     Route: 048
  6. COPEGUS [Suspect]
     Dosage: UNK
  7. PEGASYS [Suspect]
     Indication: HEPATITIS C
     Dosage: 180 MICROGRAM, QW
     Route: 058
     Dates: start: 20120606, end: 20121018
  8. NOVO-NORM [Concomitant]
     Indication: DIABETES MELLITUS
     Dosage: UNK
     Route: 048
  9. COTAREG [Concomitant]
     Indication: HYPERTENSION
     Dosage: UNK
     Route: 048
  10. EUCREAS [Concomitant]
     Indication: DIABETES MELLITUS
     Dosage: UNK
     Route: 048
  11. LERCAN [Concomitant]
     Indication: HYPERTENSION
     Dosage: UNK
     Route: 048

REACTIONS (6)
  - Pancytopenia [Recovering/Resolving]
  - Pancytopenia [Recovering/Resolving]
  - Pancytopenia [Recovered/Resolved]
  - Dyspepsia [Unknown]
  - Dyspepsia [Unknown]
  - Dyspepsia [Recovered/Resolved]
